FAERS Safety Report 10528112 (Version 3)
Quarter: 2014Q4

REPORT INFORMATION
  Report Type: Spontaneous
  Country: US (occurrence: US)
  Receive Date: 20141020
  Receipt Date: 20141211
  Transmission Date: 20150528
  Serious: Yes (Hospitalization, Other)
  Sender: FDA-Public Use
  Company Number: US-BAYER-2014-151647

PATIENT
  Age: 34 Year
  Sex: Female

DRUGS (1)
  1. MIRENA [Suspect]
     Active Substance: LEVONORGESTREL
     Indication: CONTRACEPTION
     Dosage: 20 MCG/24HR, CONT
     Route: 015
     Dates: start: 20140110, end: 20141009

REACTIONS (15)
  - Libido decreased [None]
  - Pollakiuria [None]
  - Dysfunctional uterine bleeding [None]
  - Genital haemorrhage [None]
  - Kidney infection [None]
  - Urinary tract infection [None]
  - Feeling abnormal [None]
  - Flank pain [None]
  - Sepsis [None]
  - Back pain [None]
  - Pain [None]
  - Genital haemorrhage [None]
  - Abdominal pain [None]
  - Pyelonephritis acute [None]
  - Costovertebral angle tenderness [None]

NARRATIVE: CASE EVENT DATE: 201401
